FAERS Safety Report 18440161 (Version 1)
Quarter: 2020Q4

REPORT INFORMATION
  Report Type: Spontaneous
  Country: US (occurrence: US)
  Receive Date: 20201029
  Receipt Date: 20201029
  Transmission Date: 20210114
  Serious: No
  Sender: FDA-Public Use
  Company Number: None

PATIENT
  Age: 59 Year
  Sex: Female

DRUGS (1)
  1. AFINITOR [Suspect]
     Active Substance: EVEROLIMUS
     Route: 048
     Dates: start: 20200804, end: 20201028

REACTIONS (5)
  - Weight decreased [None]
  - Vomiting [None]
  - Diarrhoea [None]
  - Drug intolerance [None]
  - Nausea [None]

NARRATIVE: CASE EVENT DATE: 20200930
